FAERS Safety Report 24431268 (Version 2)
Quarter: 2025Q1

REPORT INFORMATION
  Report Type: Report from Study
  Country: DE (occurrence: DE)
  Receive Date: 20241014
  Receipt Date: 20250217
  Transmission Date: 20250409
  Serious: Yes (Other)
  Sender: ACCORD
  Company Number: DE-EMA-DD-20240920-7482677-080549

PATIENT
  Age: 2 Year
  Sex: Male

DRUGS (7)
  1. METHOTREXATE [Suspect]
     Active Substance: METHOTREXATE
     Indication: Still^s disease
  2. ANAKINRA [Suspect]
     Active Substance: ANAKINRA
     Indication: Still^s disease
  3. INFLIXIMAB [Suspect]
     Active Substance: INFLIXIMAB
     Indication: Still^s disease
  4. CYCLOSPORINE [Suspect]
     Active Substance: CYCLOSPORINE
     Indication: Still^s disease
  5. THALIDOMIDE [Suspect]
     Active Substance: THALIDOMIDE
     Indication: Still^s disease
  6. ETANERCEPT [Suspect]
     Active Substance: ETANERCEPT
     Indication: Still^s disease
  7. ANTI-THYMOCYTE GLOBULIN (RABBIT) NOS [Concomitant]
     Active Substance: LAPINE T-LYMPHOCYTE IMMUNE GLOBULIN
     Indication: Bone marrow conditioning regimen

REACTIONS (2)
  - Streptococcal infection [Unknown]
  - Cushing^s syndrome [Unknown]
